FAERS Safety Report 23432253 (Version 1)
Quarter: 2024Q1

REPORT INFORMATION
  Report Type: Spontaneous
  Country: US (occurrence: US)
  Receive Date: 20240123
  Receipt Date: 20240123
  Transmission Date: 20240409
  Serious: Yes (Other)
  Sender: FDA-Public Use
  Company Number: US-SUNOVION-2024SUN000035

PATIENT

DRUGS (1)
  1. APTIOM [Suspect]
     Active Substance: ESLICARBAZEPINE ACETATE
     Dosage: (800 MILLIGRAMS ALONG WITH A HALF OF 800 MILLIGRAMS), HS
     Route: 048

REACTIONS (5)
  - Mental impairment [Unknown]
  - Irritability [Unknown]
  - Affective disorder [Unknown]
  - Insomnia [Unknown]
  - Therapy interrupted [Unknown]
